FAERS Safety Report 7629794-9 (Version None)
Quarter: 2011Q3

REPORT INFORMATION
  Report Type: 
  Country: None (occurrence: None)
  Receive Date: 20110722
  Receipt Date: 20110718
  Transmission Date: 20111222
  Serious: Yes (Hospitalization)
  Sender: FDA-Public Use
  Company Number: FR-PFIZER INC-2011161687

PATIENT
  Age: 60 Year
  Sex: Male

DRUGS (2)
  1. VFEND [Suspect]
     Indication: ASPERGILLOSIS
     Dosage: 400 MG A DAY
     Route: 048
     Dates: start: 20110415, end: 20110614
  2. LORAZEPAM [Concomitant]
     Indication: ANXIETY
     Dosage: 2.5 MG A DAY
     Route: 048

REACTIONS (1)
  - NEUROPATHY PERIPHERAL [None]
